FAERS Safety Report 9376915 (Version 1)
Quarter: 2013Q2

REPORT INFORMATION
  Report Type: Spontaneous
  Country: US (occurrence: None)
  Receive Date: 20130628
  Receipt Date: 20130628
  Transmission Date: 20140414
  Serious: Yes (Other)
  Sender: FDA-Public Use
  Company Number: None

PATIENT
  Age: 26 Year
  Sex: Male
  Weight: 143.2 kg

DRUGS (1)
  1. BUPROPION [Suspect]
     Indication: ANXIETY
     Dates: start: 20130130, end: 20130203

REACTIONS (2)
  - Agitation [None]
  - Suicidal ideation [None]
